FAERS Safety Report 5750857-7 (Version None)
Quarter: 2008Q2

REPORT INFORMATION
  Report Type: 
  Country: None (occurrence: None)
  Receive Date: 20080528
  Receipt Date: 20080523
  Transmission Date: 20081010
  Serious: Yes (Hospitalization)
  Sender: FDA-Public Use
  Company Number: B0522393A

PATIENT
  Age: 70 Year
  Sex: Male

DRUGS (3)
  1. AMOXICILLIN + CLAVULANATE POTASSIUM [Suspect]
     Indication: TOOTH INFECTION
     Route: 048
     Dates: start: 20071224, end: 20071226
  2. ACOVIL [Concomitant]
     Route: 065
  3. CARDURA [Concomitant]
     Route: 048

REACTIONS (1)
  - GASTROINTESTINAL ULCER HAEMORRHAGE [None]
